FAERS Safety Report 7786825-3 (Version None)
Quarter: 2011Q3

REPORT INFORMATION
  Report Type: 
  Country: None (occurrence: None)
  Receive Date: 20110928
  Receipt Date: 20110928
  Transmission Date: 20111222
  Serious: Yes (Hospitalization)
  Sender: FDA-Public Use
  Company Number: None

PATIENT
  Sex: Female
  Weight: 14.3 kg

DRUGS (3)
  1. VINCRISTINE SULFATE [Suspect]
     Dosage: 1.8 MG
     Dates: end: 20110909
  2. TEMOZOLOMIDE [Suspect]
     Dosage: 300 MG
     Dates: end: 20110905
  3. IRINOTECAN HCL [Suspect]
     Dosage: 150 MG
     Dates: end: 20110905

REACTIONS (5)
  - PYREXIA [None]
  - RESPIRATORY RATE INCREASED [None]
  - HAEMOGLOBIN DECREASED [None]
  - FATIGUE [None]
  - HEART RATE INCREASED [None]
